FAERS Safety Report 18570236 (Version 1)
Quarter: 2020Q4

REPORT INFORMATION
  Report Type: Spontaneous
  Country: FR (occurrence: FR)
  Receive Date: 20201202
  Receipt Date: 20201202
  Transmission Date: 20210114
  Serious: Yes (Life-Threatening)
  Sender: FDA-Public Use
  Company Number: FR-PFIZER INC-2020472188

PATIENT
  Age: 58 Year
  Sex: Female
  Weight: 77 kg

DRUGS (6)
  1. STIVARGA [Suspect]
     Active Substance: REGORAFENIB
     Dosage: 120 MG, DAILY
     Route: 048
     Dates: start: 20200505, end: 20200511
  2. LOPERAMID [Concomitant]
     Active Substance: LOPERAMIDE
     Dosage: UNK
  3. STIVARGA [Suspect]
     Active Substance: REGORAFENIB
     Indication: COLORECTAL CANCER
     Dosage: 80 MG, DAILY
     Route: 048
     Dates: start: 20200428, end: 20200504
  4. ZIRABEV [Suspect]
     Active Substance: BEVACIZUMAB-BVZR
     Indication: COLORECTAL CANCER
     Dosage: 425 MG, FREQ:15 DAYS
     Route: 041
     Dates: start: 20191112, end: 20200414
  5. STIVARGA [Suspect]
     Active Substance: REGORAFENIB
     Dosage: 160 MG, DAILY
     Route: 048
     Dates: start: 20200512, end: 20200513
  6. PROPRANOLOL [Concomitant]
     Active Substance: PROPRANOLOL HYDROCHLORIDE
     Dosage: UNK

REACTIONS (2)
  - Infection [Recovered/Resolved]
  - Female genital tract fistula [Recovered/Resolved]

NARRATIVE: CASE EVENT DATE: 20200507
